FAERS Safety Report 19879758 (Version 1)
Quarter: 2021Q3

REPORT INFORMATION
  Report Type: Report from Study
  Country: US (occurrence: US)
  Receive Date: 20210924
  Receipt Date: 20210924
  Transmission Date: 20211014
  Serious: Yes (Death)
  Sender: FDA-Public Use
  Company Number: US-ASTRAZENECA-2021A738870

PATIENT
  Age: 21986 Day
  Sex: Female

DRUGS (4)
  1. LYNPARZA [Suspect]
     Active Substance: OLAPARIB
     Indication: BILE DUCT CANCER
     Route: 048
     Dates: start: 20200925
  2. LYNPARZA [Suspect]
     Active Substance: OLAPARIB
     Indication: RETROPERITONEAL CANCER
     Route: 048
     Dates: start: 20200925
  3. LYNPARZA [Suspect]
     Active Substance: OLAPARIB
     Indication: METASTASES TO GASTROINTESTINAL TRACT
     Route: 048
     Dates: start: 20200925
  4. LYNPARZA [Suspect]
     Active Substance: OLAPARIB
     Indication: MALIGNANT PERITONEAL NEOPLASM
     Route: 048
     Dates: start: 20200925

REACTIONS (1)
  - Death [Fatal]

NARRATIVE: CASE EVENT DATE: 20210831
